FAERS Safety Report 15239620 (Version 2)
Quarter: 2018Q3

REPORT INFORMATION
  Report Type: Spontaneous
  Country: JP (occurrence: JP)
  Receive Date: 20180803
  Receipt Date: 20180810
  Transmission Date: 20181010
  Serious: Yes (Other)
  Sender: FDA-Public Use
  Company Number: PHHY2018JP058595

PATIENT
  Age: 63 Year
  Sex: Female

DRUGS (3)
  1. GEFITINIB. [Suspect]
     Active Substance: GEFITINIB
     Indication: LUNG ADENOCARCINOMA STAGE IV
     Dosage: 250 MG, QD
     Route: 065
     Dates: start: 201601
  2. PACLITAXEL. [Suspect]
     Active Substance: PACLITAXEL
     Indication: LUNG ADENOCARCINOMA STAGE IV
     Dosage: 200 MG/M2, UNK (TOTAL SIX COURSES OF TREATMENT)
     Route: 065
     Dates: start: 201511
  3. CARBOPLATIN. [Suspect]
     Active Substance: CARBOPLATIN
     Indication: LUNG ADENOCARCINOMA STAGE IV
     Dosage: 400 MG/M2, UNK (TOTAL SIX COURSES OF TREATMENT )
     Route: 065
     Dates: start: 201511

REACTIONS (3)
  - Lung adenocarcinoma stage IV [Unknown]
  - Product use in unapproved indication [Unknown]
  - Malignant neoplasm progression [Unknown]
